FAERS Safety Report 11993111 (Version 3)
Quarter: 2017Q1

REPORT INFORMATION
  Report Type: Report from Study
  Country: US (occurrence: US)
  Receive Date: 20160203
  Receipt Date: 20170310
  Transmission Date: 20170428
  Serious: Yes (Hospitalization, Other)
  Sender: FDA-Public Use
  Company Number: PHEH2016US002389

PATIENT
  Age: 57 Year
  Sex: Male

DRUGS (1)
  1. MYFORTIC [Suspect]
     Active Substance: MYCOPHENOLATE SODIUM
     Indication: RENAL TRANSPLANT
     Dosage: 360 MG, QID
     Route: 048
     Dates: start: 20120630

REACTIONS (2)
  - Kidney transplant rejection [Unknown]
  - Renal disorder [Unknown]

NARRATIVE: CASE EVENT DATE: 20151228
